FAERS Safety Report 5487330-X (Version None)
Quarter: 2007Q4

REPORT INFORMATION
  Report Type: 
  Country: None (occurrence: None)
  Receive Date: 20071015
  Receipt Date: 20070927
  Transmission Date: 20080405
  Serious: Yes (Hospitalization)
  Sender: FDA-Public Use
  Company Number: 8027210

PATIENT
  Age: 21 Year
  Sex: Male

DRUGS (1)
  1. KEPPRA [Suspect]
     Indication: PARTIAL SEIZURES
     Dosage: 2000 MG 2/D
     Dates: start: 20070201

REACTIONS (5)
  - CONVULSION [None]
  - COUGH [None]
  - HAEMOPTYSIS [None]
  - HAEMORRHAGE [None]
  - MUCOSAL HAEMORRHAGE [None]
